FAERS Safety Report 13877122 (Version 2)
Quarter: 2017Q3

REPORT INFORMATION
  Report Type: Spontaneous
  Country: JP (occurrence: JP)
  Receive Date: 20170817
  Receipt Date: 20170825
  Transmission Date: 20171127
  Serious: Yes (Other)
  Sender: FDA-Public Use
  Company Number: JP-GLAXOSMITHKLINE-JP2017JPN125517

PATIENT
  Age: 47 Year
  Sex: Female

DRUGS (3)
  1. LAMICTAL [Suspect]
     Active Substance: LAMOTRIGINE
     Dosage: 5 MG, QD
     Route: 048
     Dates: start: 20170630, end: 20170706
  2. LAMICTAL [Suspect]
     Active Substance: LAMOTRIGINE
     Dosage: 10 MG, QD
     Route: 048
     Dates: start: 20170707, end: 20170721
  3. LAMICTAL [Suspect]
     Active Substance: LAMOTRIGINE
     Dosage: 25 MG, QD
     Route: 048
     Dates: start: 20170721, end: 2017

REACTIONS (5)
  - Drug administered to patient of inappropriate age [Unknown]
  - Prescribed underdose [Unknown]
  - Diabetes insipidus [Unknown]
  - Pollakiuria [Unknown]
  - Polyuria [Unknown]

NARRATIVE: CASE EVENT DATE: 2017
